FAERS Safety Report 10374010 (Version 1)
Quarter: 2014Q3

REPORT INFORMATION
  Report Type: Spontaneous
  Country: JP (occurrence: JP)
  Receive Date: 20140810
  Receipt Date: 20140810
  Transmission Date: 20150326
  Serious: Yes (Death, Other)
  Sender: FDA-Public Use
  Company Number: PHHY2006JP010330

PATIENT
  Age: 65 Year
  Sex: Male

DRUGS (1)
  1. GLIVEC [Suspect]
     Active Substance: IMATINIB MESYLATE
     Indication: CHRONIC MYELOID LEUKAEMIA
     Dates: start: 20060601

REACTIONS (4)
  - Pancreatic neoplasm [Unknown]
  - Second primary malignancy [Unknown]
  - Death [Fatal]
  - Metastases to liver [Unknown]
